FAERS Safety Report 7434467-1 (Version None)
Quarter: 2011Q2

REPORT INFORMATION
  Report Type: 
  Country: None (occurrence: None)
  Receive Date: 20110420
  Receipt Date: 20110420
  Transmission Date: 20111010
  Serious: Yes (Other)
  Sender: FDA-Public Use
  Company Number: None

PATIENT
  Sex: Female
  Weight: 77.1115 kg

DRUGS (5)
  1. PRILOSEC [Suspect]
     Dates: start: 19970101, end: 20110418
  2. PREVACID [Concomitant]
  3. NEXIUM [Suspect]
     Indication: GASTROOESOPHAGEAL REFLUX DISEASE
     Dosage: 1 OR 2 TIMES PER DAY
     Dates: start: 19970101, end: 20110418
  4. NEXIUM [Suspect]
     Indication: BARRETT'S OESOPHAGUS
     Dosage: 1 OR 2 TIMES PER DAY
     Dates: start: 19970101, end: 20110418
  5. NEXIUM [Suspect]
     Indication: HELICOBACTER INFECTION
     Dosage: 1 OR 2 TIMES PER DAY
     Dates: start: 19970101, end: 20110418

REACTIONS (9)
  - DYSPEPSIA [None]
  - HAND FRACTURE [None]
  - OSTEOPOROSIS [None]
  - ARTHRALGIA [None]
  - LOWER LIMB FRACTURE [None]
  - BONE PAIN [None]
  - VITAMIN D DECREASED [None]
  - FOOT FRACTURE [None]
  - BLOOD CALCIUM DECREASED [None]
